FAERS Safety Report 25407471 (Version 1)
Quarter: 2025Q2

REPORT INFORMATION
  Report Type: Spontaneous
  Country: US (occurrence: None)
  Receive Date: 20250605
  Receipt Date: 20250605
  Transmission Date: 20250717
  Serious: Yes (Other)
  Sender: FDA-CTU
  Company Number: None

PATIENT
  Age: 43 Year
  Sex: Female
  Weight: 98.1 kg

DRUGS (3)
  1. ESCITALOPRAM [Suspect]
     Active Substance: ESCITALOPRAM OXALATE
     Indication: Major depression
     Dosage: FREQUENCY : DAILY;?
     Route: 048
     Dates: start: 20200910, end: 20250516
  2. WEGOVY [Concomitant]
     Active Substance: SEMAGLUTIDE
  3. Nifedapine [Concomitant]

REACTIONS (2)
  - Gastrointestinal pain [None]
  - Reversible cerebral vasoconstriction syndrome [None]

NARRATIVE: CASE EVENT DATE: 20250516
